FAERS Safety Report 17859369 (Version 2)
Quarter: 2020Q2

REPORT INFORMATION
  Report Type: Spontaneous
  Country: FR (occurrence: FR)
  Receive Date: 20200604
  Receipt Date: 20200626
  Transmission Date: 20200714
  Serious: Yes (Hospitalization, Other)
  Sender: FDA-Public Use
  Company Number: FR-SUN PHARMACEUTICAL INDUSTRIES LTD-2020R1-241491

PATIENT
  Age: 71 Year
  Sex: Male

DRUGS (1)
  1. SERTRALINE [Suspect]
     Active Substance: SERTRALINE HYDROCHLORIDE
     Indication: MAJOR DEPRESSION
     Dosage: 50 MILLIGRAM, DAILY
     Route: 065

REACTIONS (10)
  - Anaemia [Recovered/Resolved]
  - Haemorrhage [Unknown]
  - Packed red blood cell transfusion [Recovered/Resolved]
  - Platelet transfusion [Recovered/Resolved]
  - Arterial ligation [Recovered/Resolved]
  - Platelet dysfunction [Recovered/Resolved]
  - Platelet disorder [Recovered/Resolved]
  - Epistaxis [Recovered/Resolved]
  - Thrombocytopenia [Recovered/Resolved]
  - Nasal cavity packing [Recovered/Resolved]

NARRATIVE: CASE EVENT DATE: 2015
